FAERS Safety Report 4832992-0 (Version None)
Quarter: 2005Q4

REPORT INFORMATION
  Report Type: 
  Country: None (occurrence: None)
  Receive Date: 20051121
  Receipt Date: 20040810
  Transmission Date: 20060501
  Serious: Yes (Hospitalization)
  Sender: FDA-Public Use
  Company Number: FR-SOLVAY-00204002743

PATIENT
  Age: 57 Year
  Sex: Male

DRUGS (3)
  1. COVERSYL [Suspect]
     Indication: ESSENTIAL HYPERTENSION
     Dosage: DAILY DOSE: 4 MG.
     Route: 048
  2. LIPANTHYL [Suspect]
     Indication: LIPID METABOLISM DISORDER
     Dosage: DAILY DOSE: 1 DF.
     Route: 048
     Dates: start: 20030101, end: 20040720
  3. TOCOPHEROL CONCENTRATE CAP [Suspect]
     Indication: ILL-DEFINED DISORDER
     Dosage: DAILY DOSE: 1 DF.
     Route: 048
     Dates: start: 20040701, end: 20040720

REACTIONS (2)
  - PANCREATIC PSEUDOCYST [None]
  - PANCREATITIS ACUTE [None]
